FAERS Safety Report 18472902 (Version 1)
Quarter: 2020Q4

REPORT INFORMATION
  Report Type: Spontaneous
  Country: US (occurrence: US)
  Receive Date: 20201104
  Receipt Date: 20201104
  Transmission Date: 20210114
  Serious: Yes (Hospitalization)
  Sender: FDA-Public Use
  Company Number: None

PATIENT
  Age: 51 Year
  Sex: Female

DRUGS (7)
  1. ARIPIPRAZOLE TAB [Concomitant]
  2. ICATIBANT [Suspect]
     Active Substance: ICATIBANT ACETATE
     Route: 058
     Dates: start: 20200220
  3. DESVENLAFAX TAB [Concomitant]
  4. CLONAZEPAM TAB [Concomitant]
     Active Substance: CLONAZEPAM
  5. ROSUVASTATIN. [Concomitant]
     Active Substance: ROSUVASTATIN
  6. WARFARIN TAB [Concomitant]
  7. NADOLOL TAB [Concomitant]

REACTIONS (2)
  - Unevaluable event [None]
  - Hospitalisation [None]

NARRATIVE: CASE EVENT DATE: 20201102
